FAERS Safety Report 7530195-2 (Version None)
Quarter: 2011Q2

REPORT INFORMATION
  Report Type: 
  Country: None (occurrence: None)
  Receive Date: 20110606
  Receipt Date: 20110606
  Transmission Date: 20111010
  Serious: Yes (Disabling, Other)
  Sender: FDA-Public Use
  Company Number: None

PATIENT
  Sex: Female
  Weight: 68.0396 kg

DRUGS (1)
  1. BYSTOLIC [Suspect]
     Indication: HYPERTENSION
     Dosage: 10MG 2X DAY
     Dates: start: 20091101, end: 20110401

REACTIONS (6)
  - ATRIAL FIBRILLATION [None]
  - TRAUMATIC LUNG INJURY [None]
  - POST PROCEDURAL COMPLICATION [None]
  - THROMBOSIS [None]
  - IATROGENIC INJURY [None]
  - HEART RATE DECREASED [None]
